FAERS Safety Report 10024816 (Version 3)
Quarter: 2014Q2

REPORT INFORMATION
  Report Type: Spontaneous
  Country: US (occurrence: US)
  Receive Date: 20140320
  Receipt Date: 20140428
  Transmission Date: 20141212
  Serious: No
  Sender: FDA-Public Use
  Company Number: US-BAYER-2014-038293

PATIENT
  Sex: Female

DRUGS (3)
  1. MIRENA [Suspect]
     Dosage: 20 MCG/24HR, CONT
     Route: 015
     Dates: start: 20140210, end: 20140310
  2. MIRENA [Suspect]
     Dosage: 20 MCG/24HR, CONT
     Route: 015
     Dates: start: 20140310, end: 20140411
  3. MIRENA [Suspect]

REACTIONS (4)
  - Device expulsion [None]
  - Device expulsion [None]
  - Device expulsion [None]
  - Device physical property issue [None]
